FAERS Safety Report 8420829 (Version 4)
Quarter: 2015Q2

REPORT INFORMATION
  Report Type: Report from Study
  Country: JP (occurrence: JP)
  Receive Date: 20120222
  Receipt Date: 20150601
  Transmission Date: 20150821
  Serious: Yes (Other)
  Sender: FDA-Public Use
  Company Number: JP-ROCHE-1035788

PATIENT

DRUGS (6)
  1. OXALIPLATIN. [Suspect]
     Active Substance: OXALIPLATIN
     Indication: COLORECTAL CANCER METASTATIC
     Dosage: INTRODUCTORY PHASE
     Route: 042
  2. 5-FU [Suspect]
     Active Substance: FLUOROURACIL
     Route: 042
  3. 5-FU [Suspect]
     Active Substance: FLUOROURACIL
     Indication: COLORECTAL CANCER METASTATIC
     Route: 040
  4. FOLINIC ACID [Suspect]
     Active Substance: LEUCOVORIN
     Indication: COLORECTAL CANCER METASTATIC
     Route: 065
  5. BEVACIZUMAB [Suspect]
     Active Substance: BEVACIZUMAB
     Indication: COLORECTAL CANCER METASTATIC
     Dosage: THE COURSE OF 90 MIN IN CYCLE 1, 60 MIN IN CYCLE 2, AND 30 MIN IN CYCLE 3 AND SUBSEQUENT CYCLES
     Route: 042
  6. OXALIPLATIN. [Suspect]
     Active Substance: OXALIPLATIN
     Dosage: RE-INTRODUCTION PHASE
     Route: 065

REACTIONS (19)
  - Hyperammonaemia [Unknown]
  - Leukopenia [Unknown]
  - Diarrhoea [Unknown]
  - Peripheral sensory neuropathy [Unknown]
  - Anaphylactic reaction [Unknown]
  - Ileus [Unknown]
  - Intestinal perforation [Recovered/Resolved]
  - Hypertension [Unknown]
  - Anaemia [Unknown]
  - Decreased appetite [Unknown]
  - Neutropenia [Unknown]
  - Nausea [Unknown]
  - Neurotoxicity [Unknown]
  - Weight increased [Unknown]
  - Anal ulcer [Unknown]
  - Hyperbilirubinaemia [Unknown]
  - Pyrexia [Unknown]
  - Hypokalaemia [Unknown]
  - Thrombocytopenia [Unknown]
